FAERS Safety Report 8369813-8 (Version None)
Quarter: 2012Q1

REPORT INFORMATION
  Report Type: 
  Country: None (occurrence: None)
  Receive Date: 20120323
  Receipt Date: 20110324
  Transmission Date: 20120608
  Serious: Yes (Hospitalization)
  Sender: FDA-Public Use
  Company Number: 163-21880-11012235

PATIENT
  Age: 60 Year
  Sex: Male
  Weight: 88 kg

DRUGS (13)
  1. HYDROCODONE BITARTRATE [Concomitant]
  2. TEMAZEPAM [Concomitant]
  3. CENTRUM (CENTRUM) [Concomitant]
  4. MAG64 (MAG64) [Concomitant]
  5. REVLIMID [Suspect]
     Indication: NON-HODGKIN'S LYMPHOMA
     Dosage: 5 MG, FOR 21 DAYS, PO, 5 MG, FOR 21 DAYS, PO
     Route: 048
     Dates: start: 20101201, end: 20101214
  6. REVLIMID [Suspect]
     Indication: NON-HODGKIN'S LYMPHOMA
     Dosage: 5 MG, FOR 21 DAYS, PO, 5 MG, FOR 21 DAYS, PO
     Route: 048
     Dates: start: 20110101, end: 20110210
  7. DESOXMETAS (DESOXIMETASONE) [Concomitant]
  8. ALBUTEROL [Concomitant]
  9. LEXAPRO [Concomitant]
  10. LIDOCAINE [Concomitant]
  11. ADVAIR HFA [Concomitant]
  12. GELCLAIR (GELCLARI) [Concomitant]
  13. POLYETH GLY (MACROGOL) [Concomitant]

REACTIONS (3)
  - PNEUMONIA [None]
  - DISEASE PROGRESSION [None]
  - PLATELET COUNT DECREASED [None]
